FAERS Safety Report 23453514 (Version 4)
Quarter: 2024Q1

REPORT INFORMATION
  Report Type: Report from Study
  Country: CA (occurrence: CA)
  Receive Date: 20240129
  Receipt Date: 20240227
  Transmission Date: 20240410
  Serious: No
  Sender: FDA-Public Use
  Company Number: CA-BoehringerIngelheim-2024-BI-005088

PATIENT
  Age: 77 Year
  Sex: Male

DRUGS (1)
  1. SPEVIGO [Suspect]
     Active Substance: SPESOLIMAB-SBZO
     Indication: Pustular psoriasis
     Route: 042
     Dates: start: 20240122

REACTIONS (8)
  - Rash [Recovering/Resolving]
  - Lethargy [Not Recovered/Not Resolved]
  - Asthenia [Not Recovered/Not Resolved]
  - Fatigue [Not Recovered/Not Resolved]
  - Skin exfoliation [Not Recovered/Not Resolved]
  - Skin disorder [Not Recovered/Not Resolved]
  - Erythema [Recovering/Resolving]
  - Pruritus [Not Recovered/Not Resolved]
